FAERS Safety Report 22028354 (Version 2)
Quarter: 2024Q1

REPORT INFORMATION
  Report Type: Spontaneous
  Country: US (occurrence: None)
  Receive Date: 20230223
  Receipt Date: 20240206
  Transmission Date: 20240410
  Serious: No
  Sender: FDA-Public Use
  Company Number: US-ROCHE-3239695

PATIENT
  Sex: Male

DRUGS (2)
  1. NUTROPIN [Suspect]
     Active Substance: SOMATROPIN
     Indication: Product used for unknown indication
     Dosage: (10MG/2ML)
     Route: 058
  2. NUTROPIN [Suspect]
     Active Substance: SOMATROPIN

REACTIONS (1)
  - Myalgia [Unknown]
